FAERS Safety Report 5592911-9 (Version None)
Quarter: 2008Q1

REPORT INFORMATION
  Report Type: 
  Country: None (occurrence: None)
  Receive Date: 20080116
  Receipt Date: 20080111
  Transmission Date: 20080703
  Serious: Yes (Death)
  Sender: FDA-Public Use
  Company Number: BR-BAYER-200715828GDS

PATIENT
  Age: 68 Year
  Sex: Male
  Weight: 65 kg

DRUGS (20)
  1. SORAFENIB [Suspect]
     Indication: NON-SMALL CELL LUNG CANCER
     Dosage: TOTAL DAILY DOSE: 800 MG
     Route: 048
     Dates: start: 20070912, end: 20070928
  2. SORAFENIB [Suspect]
     Dosage: TOTAL DAILY DOSE: 800 MG
     Route: 048
     Dates: start: 20070427, end: 20070514
  3. SORAFENIB [Suspect]
     Dosage: TOTAL DAILY DOSE: 800 MG
     Route: 048
     Dates: start: 20070519, end: 20070605
  4. SORAFENIB [Suspect]
     Dosage: TOTAL DAILY DOSE: 800 MG
     Route: 048
     Dates: start: 20070609, end: 20070626
  5. SORAFENIB [Suspect]
     Dosage: TOTAL DAILY DOSE: 800 MG
     Route: 048
     Dates: start: 20070629, end: 20070716
  6. CARBOPLATIN [Suspect]
     Indication: NON-SMALL CELL LUNG CANCER
     Route: 042
     Dates: start: 20070426, end: 20070426
  7. CARBOPLATIN [Suspect]
     Route: 042
     Dates: start: 20070518, end: 20070518
  8. CARBOPLATIN [Suspect]
     Route: 042
     Dates: start: 20070720, end: 20070720
  9. CARBOPLATIN [Suspect]
     Route: 042
     Dates: start: 20070810, end: 20070810
  10. CARBOPLATIN [Suspect]
     Route: 042
     Dates: start: 20070608, end: 20070608
  11. CARBOPLATIN [Suspect]
     Route: 042
     Dates: start: 20070629, end: 20070629
  12. PACLITAXEL [Suspect]
     Indication: NON-SMALL CELL LUNG CANCER
     Route: 042
     Dates: start: 20070810, end: 20070810
  13. PACLITAXEL [Suspect]
     Route: 042
     Dates: start: 20070608, end: 20070608
  14. PACLITAXEL [Suspect]
     Route: 042
     Dates: start: 20070629, end: 20070629
  15. PACLITAXEL [Suspect]
     Route: 042
     Dates: start: 20070720, end: 20070720
  16. PACLITAXEL [Suspect]
     Route: 042
     Dates: start: 20070518, end: 20070518
  17. PACLITAXEL [Suspect]
     Route: 042
     Dates: start: 20070426, end: 20070426
  18. RED BLOOD TRANSFUSION [Concomitant]
     Indication: ANAEMIA
     Route: 042
     Dates: start: 20070510, end: 20070510
  19. CAPTOPRIL [Concomitant]
     Indication: HYPERTENSION
     Route: 048
     Dates: start: 20060101, end: 20070928
  20. HYDROCHLOROTHIAZIDE [Concomitant]
     Indication: HYPERTENSION
     Route: 048
     Dates: start: 20060101, end: 20070928

REACTIONS (1)
  - RESPIRATORY FAILURE [None]
